FAERS Safety Report 5480999-5 (Version None)
Quarter: 2007Q4

REPORT INFORMATION
  Report Type: 
  Country: None (occurrence: None)
  Receive Date: 20071004
  Receipt Date: 20070927
  Transmission Date: 20080405
  Serious: Yes (Hospitalization)
  Sender: FDA-Public Use
  Company Number: 6037085

PATIENT
  Age: 69 Year
  Sex: Female

DRUGS (3)
  1. BISOPROLOL FUMARATE [Suspect]
     Indication: HYPERTENSION
     Dosage: 5,00 MG (5 MG, 1 IN 1 D);
     Dates: start: 20070501
  2. KENZEN (8 MG, TABLET) (CANDESARTAN CILEXETIL) [Suspect]
     Indication: HYPERTENSION
     Dosage: 8,00 MG (8 MG, 1 IN 1 D);
     Dates: start: 20070601, end: 20070801
  3. FUROSEMIDE (20 MG TABLET) (FUROSEMIDE) [Concomitant]

REACTIONS (4)
  - CHEST PAIN [None]
  - COOMBS POSITIVE HAEMOLYTIC ANAEMIA [None]
  - GAMMOPATHY [None]
  - OEDEMA PERIPHERAL [None]
